FAERS Safety Report 5019902-0 (Version None)
Quarter: 2006Q2

REPORT INFORMATION
  Report Type: 
  Country: None (occurrence: None)
  Receive Date: 20060605
  Receipt Date: 20060605
  Transmission Date: 20061013
  Serious: Yes (Other)
  Sender: FDA-Public Use
  Company Number: None

PATIENT
  Sex: Male
  Weight: 104.3273 kg

DRUGS (2)
  1. TRAMADOL   50 MG  APOTEX [Suspect]
     Indication: ARTHRALGIA
     Dosage: 2 TABLETS  FOUR TIMES A DAY PO
     Route: 048
     Dates: start: 20060301, end: 20060410
  2. TRAMADOL   50 MG  APOTEX [Suspect]
     Indication: MYALGIA
     Dosage: 2 TABLETS  FOUR TIMES A DAY PO
     Route: 048
     Dates: start: 20060301, end: 20060410

REACTIONS (3)
  - ACTIVITIES OF DAILY LIVING IMPAIRED [None]
  - HEADACHE [None]
  - MOTION SICKNESS [None]
